FAERS Safety Report 11389391 (Version 1)
Quarter: 2015Q3

REPORT INFORMATION
  Report Type: Report from Study
  Country: CN (occurrence: CN)
  Receive Date: 20150817
  Receipt Date: 20150817
  Transmission Date: 20151125
  Serious: Yes (Other)
  Sender: FDA-Public Use
  Company Number: CN-BAXALTA-2015BAX029336

PATIENT
  Age: 10 Year
  Weight: 28 kg

DRUGS (3)
  1. ADVATE [Suspect]
     Active Substance: ANTIHEMOPHILIC FACTOR, HUMAN RECOMBINANT
     Indication: PROPHYLAXIS
  2. KOGENATE FS [Concomitant]
     Active Substance: ANTIHEMOPHILIC FACTOR, HUMAN RECOMBINANT
     Indication: HAEMOPHILIA
     Route: 065
  3. ADVATE [Suspect]
     Active Substance: ANTIHEMOPHILIC FACTOR, HUMAN RECOMBINANT
     Indication: HAEMOPHILIA
     Dosage: 500 IU, 2X A WEEK, PREVENTIVE TREATMENT LOW DOSAGE LONG TERM REGULAR INJECTION
     Route: 065
     Dates: start: 20131125

REACTIONS (1)
  - Haemarthrosis [Unknown]

NARRATIVE: CASE EVENT DATE: 201312
